FAERS Safety Report 12595672 (Version 2)
Quarter: 2017Q1

REPORT INFORMATION
  Report Type: Report from Study
  Country: US (occurrence: US)
  Receive Date: 20160726
  Receipt Date: 20170126
  Transmission Date: 20170428
  Serious: No
  Sender: FDA-Public Use
  Company Number: US-AMGEN-USASL2016020259

PATIENT
  Age: 75 Year
  Sex: Female

DRUGS (1)
  1. KYPROLIS [Suspect]
     Active Substance: CARFILZOMIB
     Indication: PLASMA CELL MYELOMA
     Dosage: UNK, QWK
     Route: 065

REACTIONS (6)
  - Vertigo [Unknown]
  - Constipation [Unknown]
  - Erythema [Unknown]
  - Off label use [Unknown]
  - Abdominal pain upper [Unknown]
  - Dizziness [Unknown]
